FAERS Safety Report 19766631 (Version 2)
Quarter: 2023Q2

REPORT INFORMATION
  Report Type: Spontaneous
  Country: NZ (occurrence: NZ)
  Receive Date: 20210831
  Receipt Date: 20230412
  Transmission Date: 20230721
  Serious: Yes (Death, Hospitalization, Other)
  Sender: FDA-Public Use
  Company Number: NZ-ABBVIE-21K-118-4060712-00

PATIENT
  Sex: Male

DRUGS (23)
  1. CARBIDOPA\LEVODOPA [Suspect]
     Active Substance: CARBIDOPA\LEVODOPA
     Indication: Parkinson^s disease
     Route: 050
     Dates: end: 20211008
  2. CARBIDOPA\LEVODOPA [Suspect]
     Active Substance: CARBIDOPA\LEVODOPA
  3. CLONAZEPAM [Concomitant]
     Active Substance: CLONAZEPAM
     Indication: Rapid eye movements sleep abnormal
     Dosage: EVERY NIGHT
     Route: 048
  4. CLONAZEPAM [Concomitant]
     Active Substance: CLONAZEPAM
     Indication: Rapid eye movements sleep abnormal
     Dosage: AT NIGHT
     Route: 048
     Dates: start: 20211014
  5. VITAMIN D3 [Concomitant]
     Active Substance: CHOLECALCIFEROL
     Indication: Prophylaxis
     Route: 048
  6. DOCUSATE SODIUM [Concomitant]
     Active Substance: DOCUSATE SODIUM
     Indication: Constipation
     Dosage: DOCUSATE SODIUM 50MG + SENNOSIDE B 8MG
     Route: 048
  7. SENNOSIDE B [Concomitant]
     Active Substance: SENNOSIDE B
     Indication: Constipation
     Dosage: TWICE IN DAY AS PER REQUIREMENT
     Route: 048
  8. FLUDROCORTISONE [Concomitant]
     Active Substance: FLUDROCORTISONE
     Indication: Product used for unknown indication
     Dosage: IN THE MORNING
     Route: 048
     Dates: end: 20210804
  9. FINASTERIDE [Concomitant]
     Active Substance: FINASTERIDE
     Indication: Product used for unknown indication
     Dosage: IN THE MORNING
     Route: 048
  10. MIDODRINE [Concomitant]
     Active Substance: MIDODRINE
     Indication: Product used for unknown indication
     Dosage: TIME INTERVAL: 0.33333333 DAYS
     Route: 048
     Dates: end: 20200804
  11. MIDODRINE [Concomitant]
     Active Substance: MIDODRINE
     Indication: Product used for unknown indication
     Route: 048
     Dates: end: 20200804
  12. PYRIDOXINE [Concomitant]
     Active Substance: PYRIDOXINE
     Indication: Product used for unknown indication
     Route: 048
  13. QUETIAPINE [Concomitant]
     Active Substance: QUETIAPINE
     Indication: Product used for unknown indication
     Dosage: AT NIGHT
     Route: 048
     Dates: start: 20211014
  14. ENSURE [Concomitant]
     Active Substance: AMINO ACIDS\DEXTROSE\ELECTROLYTES NOS\SOYBEAN OIL\VITAMINS
     Indication: Product used for unknown indication
     Dosage: PROTEIN 15.9 G/100 G + CARBO57.37 G/100 G + FAT 13.98 G + FIBRE 4.18 G/100G
     Route: 048
     Dates: start: 20211014
  15. HYDROCORTISONE BUTYRATE [Concomitant]
     Active Substance: HYDROCORTISONE BUTYRATE
     Indication: Product used for unknown indication
     Dosage: 1MG/G
     Route: 061
  16. HYDROCORTISONE BUTYRATE [Concomitant]
     Active Substance: HYDROCORTISONE BUTYRATE
     Indication: Product used for unknown indication
     Dosage: 1MG/G, 0.1%, TWICE DAILY AS PER REQUIRED
     Route: 061
  17. CLOPIDOGREL [Concomitant]
     Active Substance: CLOPIDOGREL BISULFATE
     Indication: Product used for unknown indication
     Dosage: AT MORNING
     Route: 048
     Dates: end: 20210804
  18. LACTULOSE [Concomitant]
     Active Substance: LACTULOSE
     Indication: Product used for unknown indication
     Route: 048
  19. LACTULOSE [Concomitant]
     Active Substance: LACTULOSE
     Indication: Product used for unknown indication
     Route: 048
     Dates: start: 20211014
  20. AMOXICILLIN [Concomitant]
     Active Substance: AMOXICILLIN
     Indication: Product used for unknown indication
     Dosage: TIME INTERVAL: 0.33333333 DAYS
     Route: 048
     Dates: end: 20210811
  21. AMOXICILLIN [Concomitant]
     Active Substance: AMOXICILLIN
     Indication: Product used for unknown indication
     Route: 048
     Dates: end: 20210811
  22. DOCUSATE SODIUM\SENNOSIDES A AND B [Concomitant]
     Active Substance: DOCUSATE SODIUM\SENNOSIDES A AND B
     Indication: Product used for unknown indication
     Route: 048
     Dates: start: 20211014
  23. CETOMACROGOL;GLYCEROL [Concomitant]
     Indication: Product used for unknown indication
     Dosage: TIME INTERVAL: AS NECESSARY
     Route: 061
     Dates: start: 20211014

REACTIONS (20)
  - General physical health deterioration [Fatal]
  - Dyspnoea [Recovered/Resolved]
  - Cough [Recovered/Resolved]
  - Ischaemic stroke [Recovered/Resolved with Sequelae]
  - Snoring [Unknown]
  - Urine odour abnormal [Unknown]
  - Lower respiratory tract infection [Unknown]
  - Pneumonia aspiration [Fatal]
  - Atrial fibrillation [Unknown]
  - Hyperhidrosis [Unknown]
  - Salivary hypersecretion [Unknown]
  - Clostridium difficile infection [Recovered/Resolved]
  - Hypokalaemia [Recovered/Resolved]
  - Orthostatic hypotension [Recovered/Resolved]
  - Constipation [Recovered/Resolved]
  - Chest pain [Unknown]
  - Dysarthria [Unknown]
  - Somnolence [Unknown]
  - Abnormal behaviour [Unknown]
  - Hypernatraemia [Unknown]

NARRATIVE: CASE EVENT DATE: 20210101
